FAERS Safety Report 4395532-9 (Version None)
Quarter: 2004Q3

REPORT INFORMATION
  Report Type: 
  Country: None (occurrence: None)
  Receive Date: 20040712
  Receipt Date: 20040712
  Transmission Date: 20050211
  Serious: Yes (Death, Hospitalization)
  Sender: FDA-Public Use
  Company Number: None

PATIENT
  Age: 63 Year
  Sex: Female
  Weight: 80.7403 kg

DRUGS (2)
  1. PACERONE [Suspect]
     Indication: ATRIAL FIBRILLATION
     Dosage: 2 TABLET DAILY
     Dates: start: 20010210, end: 20030523
  2. PACERONE [Suspect]
     Indication: SURGERY
     Dosage: 2 TABLET DAILY
     Dates: start: 20010210, end: 20030523

REACTIONS (1)
  - DEATH [None]
